FAERS Safety Report 7534323-4 (Version None)
Quarter: 2011Q2

REPORT INFORMATION
  Report Type: 
  Country: None (occurrence: None)
  Receive Date: 20110608
  Receipt Date: 20110509
  Transmission Date: 20111010
  Serious: No
  Sender: FDA-Public Use
  Company Number: US-AMGEN-USASP2011023885

PATIENT

DRUGS (3)
  1. FOLFOX-4 [Concomitant]
  2. AVASTIN [Concomitant]
  3. XGEVA [Suspect]
     Indication: PRODUCT USED FOR UNKNOWN INDICATION

REACTIONS (1)
  - HYPOPHOSPHATAEMIA [None]
